FAERS Safety Report 25279380 (Version 1)
Quarter: 2025Q2

REPORT INFORMATION
  Report Type: Spontaneous
  Country: US (occurrence: None)
  Receive Date: 20250507
  Receipt Date: 20250507
  Transmission Date: 20250717
  Serious: Yes (Hospitalization)
  Sender: FDA-CTU
  Company Number: None

PATIENT
  Age: 60 Year
  Sex: Female

DRUGS (19)
  1. TACROLIMUS [Suspect]
     Active Substance: TACROLIMUS
     Indication: Liver transplant
     Dosage: FREQUENCY : TWICE A DAY;?
     Route: 048
  2. MYCOPHENOLIC ACID [Suspect]
     Active Substance: MYCOPHENOLIC ACID
     Indication: Liver transplant
     Dosage: FREQUENCY : 3 TIMES A DAY;?
     Route: 048
  3. FUROSEMIDE [Concomitant]
     Active Substance: FUROSEMIDE
  4. loperamide 2 mg capsule [Concomitant]
  5. AMLODIPINE BESYLATE [Concomitant]
     Active Substance: AMLODIPINE BESYLATE
  6. atovaquone 750 mg/5 mL suspension [Concomitant]
  7. aspirin 325 mg tablet [Concomitant]
  8. valganciclovir 450 mg tablet [Concomitant]
  9. PREDNISONE [Concomitant]
     Active Substance: PREDNISONE
  10. mag-oxide 400 mg tablet [Concomitant]
  11. potassium chloride10 mEq ER tablet [Concomitant]
  12. oxycodone 5 mg immediate release tablet [Concomitant]
  13. bupropion XL 150 mg tablet [Concomitant]
  14. ondansetron ODT 4 mg tablet [Concomitant]
  15. EZETIMIBE [Concomitant]
     Active Substance: EZETIMIBE
  16. SPIRONOLACTONE [Concomitant]
     Active Substance: SPIRONOLACTONE
  17. Synthroid 0.15 mg tablet [Concomitant]
  18. PANTOPRAZOLE [Concomitant]
     Active Substance: PANTOPRAZOLE
  19. diazepam 5 mg tablet [Concomitant]

REACTIONS (3)
  - Liver transplant [None]
  - Immunosuppressant drug level increased [None]
  - Drug level fluctuating [None]

NARRATIVE: CASE EVENT DATE: 20250502
